FAERS Safety Report 23449280 (Version 1)
Quarter: 2024Q1

REPORT INFORMATION
  Report Type: Report from Study
  Country: ES (occurrence: ES)
  Receive Date: 20240129
  Receipt Date: 20240129
  Transmission Date: 20240410
  Serious: Yes (Hospitalization)
  Sender: FDA-Public Use
  Company Number: None

PATIENT
  Age: 51 Year
  Sex: Female

DRUGS (1)
  1. SIMPONI [Suspect]
     Active Substance: GOLIMUMAB
     Indication: Oligoarthritis
     Dosage: 50 MG / 30 DIAS
     Route: 058
     Dates: start: 20230905, end: 20231220

REACTIONS (1)
  - Septic arthritis staphylococcal [Not Recovered/Not Resolved]

NARRATIVE: CASE EVENT DATE: 20231220
